FAERS Safety Report 8324711-0 (Version None)
Quarter: 2012Q2

REPORT INFORMATION
  Report Type: 
  Country: None (occurrence: None)
  Receive Date: 20120501
  Receipt Date: 20120419
  Transmission Date: 20120825
  Serious: Yes (Hospitalization)
  Sender: FDA-Public Use
  Company Number: JP-UCBSA-054295

PATIENT
  Age: 39 Year
  Sex: Female

DRUGS (13)
  1. PREDNISOLONE [Concomitant]
     Dosage: DAILY DOSE: 5 MG
     Dates: start: 20120209
  2. CERTOLIZUMAB PEGOL [Suspect]
     Indication: RHEUMATOID ARTHRITIS
     Route: 058
     Dates: start: 20111115, end: 20120322
  3. RHEUMATREX [Suspect]
     Route: 048
     Dates: start: 20111130, end: 20111201
  4. RHEUMATREX [Suspect]
     Indication: RHEUMATOID ARTHRITIS
     Route: 048
     Dates: start: 20120111, end: 20120301
  5. ALFACALCIDOL [Concomitant]
     Dosage: DAILY DOSE: 1 MCG
     Dates: start: 20111228
  6. RHEUMATREX [Suspect]
     Route: 048
     Dates: start: 20111214, end: 20111201
  7. LOXOPROFEN SODIUM HYDRATE [Concomitant]
     Dosage: DAILY DOSE: 120 MG
     Dates: start: 20120110
  8. TEPRENONE [Concomitant]
     Dosage: DAILY DOSE: 100 MG
     Dates: start: 20120110
  9. LANSOPRAZOLE [Concomitant]
     Dosage: DAILY DOSE: 15 MG
     Dates: start: 20111129
  10. LEVOTHYROXINE SODIUM HYDRATE [Concomitant]
     Dosage: DAILY DOSE:100 MCG
     Dates: start: 20110131
  11. RHEUMATREX [Suspect]
     Route: 048
     Dates: start: 20111228, end: 20120101
  12. FOLIC ACID [Concomitant]
     Dates: start: 20111230
  13. RHEUMATREX [Suspect]
     Route: 048
     Dates: start: 20111116, end: 20111101

REACTIONS (1)
  - INTERSTITIAL LUNG DISEASE [None]
